FAERS Safety Report 10049933 (Version 1)
Quarter: 2014Q1

REPORT INFORMATION
  Report Type: Spontaneous
  Country: US (occurrence: None)
  Receive Date: 20140331
  Receipt Date: 20140331
  Transmission Date: 20141002
  Serious: Yes (Other)
  Sender: FDA-Public Use
  Company Number: None

PATIENT
  Age: 71 Year
  Sex: 0
  Weight: 68 kg

DRUGS (2)
  1. PROCRIT [Suspect]
     Dosage: 10,000 UNITS MWF INTRAMUSCULAR
     Route: 030
     Dates: start: 20140326
  2. WARFARIN [Concomitant]

REACTIONS (2)
  - Muscle spasms [None]
  - Anxiety [None]
